FAERS Safety Report 14344049 (Version 2)
Quarter: 2018Q1

REPORT INFORMATION
  Report Type: Spontaneous
  Country: IL (occurrence: IL)
  Receive Date: 20180102
  Receipt Date: 20180126
  Transmission Date: 20180509
  Serious: Yes (Hospitalization, Other)
  Sender: FDA-Public Use
  Company Number: IL-SHIRE-IL201735251

PATIENT

DRUGS (1)
  1. VPRIV [Suspect]
     Active Substance: VELAGLUCERASE ALFA
     Indication: PRODUCT USED FOR UNKNOWN INDICATION
     Dosage: 400 IU, 1X/2WKS
     Route: 065
     Dates: start: 20171219

REACTIONS (7)
  - Loss of consciousness [Recovering/Resolving]
  - Asthenia [Unknown]
  - Vomiting [Not Recovered/Not Resolved]
  - Malaise [Unknown]
  - Somnolence [Not Recovered/Not Resolved]
  - Eye movement disorder [Unknown]
  - Stupor [Unknown]
